FAERS Safety Report 8047253-9 (Version None)
Quarter: 2012Q1

REPORT INFORMATION
  Report Type: 
  Country: None (occurrence: None)
  Receive Date: 20120116
  Receipt Date: 20120112
  Transmission Date: 20120608
  Serious: Yes (Hospitalization)
  Sender: FDA-Public Use
  Company Number: FR-SANOFI-AVENTIS-2011SA083141

PATIENT
  Age: 46 Year
  Sex: Male

DRUGS (11)
  1. RABEPRAZOLE SODIUM [Concomitant]
     Dates: start: 20110301
  2. MORPHINE SULFATE [Concomitant]
     Dates: start: 20110301
  3. ACETAMINOPHEN [Concomitant]
     Dates: start: 20110301
  4. ASPIRIN [Concomitant]
     Dates: start: 20110301
  5. FLUTICASONE PROPIONATE/SALMETEROL [Concomitant]
     Dates: start: 20110301
  6. DOCETAXEL [Suspect]
     Indication: NON-SMALL CELL LUNG CANCER
     Route: 065
     Dates: start: 20111018, end: 20111108
  7. ROSUVASTATIN [Concomitant]
     Dates: start: 20110301
  8. STABLON [Concomitant]
  9. ERLOTINIB HYDROCHLORIDE [Suspect]
     Indication: NON-SMALL CELL LUNG CANCER
     Route: 065
     Dates: start: 20111019, end: 20111121
  10. MORPHINE SULFATE [Concomitant]
     Dates: start: 20110301
  11. XANAX [Concomitant]

REACTIONS (1)
  - GENERAL PHYSICAL HEALTH DETERIORATION [None]
